FAERS Safety Report 6243097-9 (Version None)
Quarter: 2009Q2

REPORT INFORMATION
  Report Type: 
  Country: None (occurrence: None)
  Receive Date: 20090624
  Receipt Date: 20090610
  Transmission Date: 20091009
  Serious: Yes (Other)
  Sender: FDA-Public Use
  Company Number: SE-AMGEN-US341197

PATIENT
  Age: 63 Year
  Sex: Female

DRUGS (6)
  1. ENBREL [Suspect]
     Indication: RHEUMATOID ARTHRITIS
     Route: 058
     Dates: start: 20051101, end: 20090306
  2. ENBREL [Suspect]
     Dates: start: 20090609
  3. ACETAMINOPHEN [Concomitant]
     Route: 065
  4. DOLOXENE [Concomitant]
     Route: 065
  5. OMEPRAZOLE [Concomitant]
     Route: 065
  6. PREDNISOLONE [Concomitant]
     Route: 048

REACTIONS (6)
  - ABDOMINAL DISCOMFORT [None]
  - ABDOMINAL PAIN UPPER [None]
  - CERVICAL SPINAL STENOSIS [None]
  - CONDITION AGGRAVATED [None]
  - DIARRHOEA [None]
  - NAUSEA [None]
